FAERS Safety Report 7694397-7 (Version None)
Quarter: 2011Q3

REPORT INFORMATION
  Report Type: 
  Country: None (occurrence: None)
  Receive Date: 20110819
  Receipt Date: 20110809
  Transmission Date: 20111222
  Serious: Yes (Hospitalization)
  Sender: FDA-Public Use
  Company Number: US-PFIZER INC-2011182539

PATIENT
  Age: 72 Year
  Sex: Female

DRUGS (2)
  1. TEMSIROLIMUS [Suspect]
     Indication: THYROID CANCER
     Dosage: UNK
     Dates: start: 20100526
  2. SORAFENIB [Suspect]
     Indication: THYROID CANCER
     Dosage: UNK
     Dates: start: 20100526

REACTIONS (2)
  - PNEUMONIA [None]
  - PULMONARY HAEMORRHAGE [None]
